FAERS Safety Report 18795989 (Version 2)
Quarter: 2021Q1

REPORT INFORMATION
  Report Type: Spontaneous
  Country: US (occurrence: US)
  Receive Date: 20210127
  Receipt Date: 20210223
  Transmission Date: 20210419
  Serious: Yes (Hospitalization, Congenital Anomaly)
  Sender: FDA-Public Use
  Company Number: US-ASTRAZENECA-2021A010710

PATIENT
  Age: 925 Month
  Sex: Female
  Weight: 66.2 kg

DRUGS (4)
  1. BREZTRI AEROSPHERE [Suspect]
     Active Substance: BUDESONIDE\FORMOTEROL\GLYCOPYRRONIUM
     Indication: GASTROOESOPHAGEAL REFLUX DISEASE
     Dosage: 160/9 /4.8 MCG 2 PUFFS AT NIGHT
     Route: 055
     Dates: start: 20201223
  2. BREZTRI AEROSPHERE [Suspect]
     Active Substance: BUDESONIDE\FORMOTEROL\GLYCOPYRRONIUM
     Indication: BRONCHIAL HYPERREACTIVITY
     Dosage: 160/9 /4.8 MCG 2 PUFFS AT NIGHT
     Route: 055
     Dates: start: 20201223
  3. BREZTRI AEROSPHERE [Suspect]
     Active Substance: BUDESONIDE\FORMOTEROL\GLYCOPYRRONIUM
     Indication: PULMONARY ARTERIAL HYPERTENSION
     Dosage: 160/9 /4.8 MCG 2 PUFFS AT NIGHT
     Route: 055
     Dates: start: 20201223
  4. BREZTRI AEROSPHERE [Suspect]
     Active Substance: BUDESONIDE\FORMOTEROL\GLYCOPYRRONIUM
     Indication: DYSPNOEA
     Dosage: 160/9 /4.8 MCG 2 PUFFS AT NIGHT
     Route: 055
     Dates: start: 20201223

REACTIONS (5)
  - Off label use [Not Recovered/Not Resolved]
  - Aphonia [Unknown]
  - Fluid retention [Recovering/Resolving]
  - Peripheral swelling [Recovered/Resolved]
  - Bronchitis [Unknown]

NARRATIVE: CASE EVENT DATE: 202101
